FAERS Safety Report 16255565 (Version 1)
Quarter: 2019Q2

REPORT INFORMATION
  Report Type: Spontaneous
  Country: US (occurrence: US)
  Receive Date: 20190326
  Receipt Date: 20190326
  Transmission Date: 20190711
  Serious: No
  Sender: FDA-Public Use
  Company Number: None

PATIENT
  Age: 53 Year
  Weight: 103 kg

DRUGS (1)
  1. LISINOPRIL. [Suspect]
     Active Substance: LISINOPRIL
     Indication: HYPERTENSION
     Route: 048
     Dates: start: 20170907, end: 20190225

REACTIONS (4)
  - Urticaria [None]
  - Rash [None]
  - Pruritus [None]
  - Angioedema [None]

NARRATIVE: CASE EVENT DATE: 20190223
